FAERS Safety Report 12572014 (Version 1)
Quarter: 2016Q3

REPORT INFORMATION
  Report Type: Spontaneous
  Country: US (occurrence: US)
  Receive Date: 20160719
  Receipt Date: 20160719
  Transmission Date: 20161109
  Serious: No
  Sender: FDA-Public Use
  Company Number: US-BAUSCH-BL-2016-007393

PATIENT
  Age: 13 Year
  Sex: Male

DRUGS (3)
  1. XIFAXAN [Suspect]
     Active Substance: RIFAXIMIN
     Indication: ERUCTATION
     Route: 048
  2. XIFAXAN [Suspect]
     Active Substance: RIFAXIMIN
     Indication: HYPERAMMONAEMIA
     Route: 048
     Dates: start: 201512
  3. XIFAXAN [Suspect]
     Active Substance: RIFAXIMIN
     Indication: FLATULENCE

REACTIONS (4)
  - Eructation [Unknown]
  - Wrong technique in product usage process [Unknown]
  - Hyperammonaemia [Unknown]
  - Flatulence [Unknown]

NARRATIVE: CASE EVENT DATE: 201512
